FAERS Safety Report 5951816-1 (Version None)
Quarter: 2008Q4

REPORT INFORMATION
  Report Type: 
  Country: None (occurrence: None)
  Receive Date: 20081113
  Receipt Date: 20081103
  Transmission Date: 20090506
  Serious: Yes (Other)
  Sender: FDA-Public Use
  Company Number: A0756249A

PATIENT
  Age: 18 Year
  Sex: Female

DRUGS (2)
  1. COMBIVIR [Suspect]
     Indication: HIV INFECTION
     Dosage: 2TAB PER DAY
     Route: 048
     Dates: start: 20080717, end: 20080809
  2. KALETRA [Concomitant]
     Indication: HIV INFECTION
     Route: 048
     Dates: start: 20080717, end: 20080809

REACTIONS (4)
  - DRUG EXPOSURE DURING PREGNANCY [None]
  - STILLBIRTH [None]
  - UMBILICAL CORD ABNORMALITY [None]
  - VASA PRAEVIA [None]
